FAERS Safety Report 6092770-4 (Version None)
Quarter: 2009Q1

REPORT INFORMATION
  Report Type: 
  Country: None (occurrence: None)
  Receive Date: 20090225
  Receipt Date: 20090225
  Transmission Date: 20090719
  Serious: Yes (Hospitalization)
  Sender: FDA-Public Use
  Company Number: GB-ABBOTT-08P-167-0479879-00

PATIENT
  Sex: Female
  Weight: 77 kg

DRUGS (5)
  1. HUMIRA [Suspect]
     Indication: RHEUMATOID ARTHRITIS
     Route: 058
     Dates: start: 20071025, end: 20080301
  2. LEFLUNOMIDE [Suspect]
     Indication: DRUG USE FOR UNKNOWN INDICATION
     Dates: start: 20070131, end: 20080201
  3. FOSAMAX [Concomitant]
     Indication: DRUG USE FOR UNKNOWN INDICATION
  4. MELOXICAM [Concomitant]
     Indication: DRUG USE FOR UNKNOWN INDICATION
  5. ASACOL [Concomitant]
     Indication: DRUG USE FOR UNKNOWN INDICATION

REACTIONS (13)
  - CARDIAC MURMUR [None]
  - CENTRAL NERVOUS SYSTEM INFECTION [None]
  - CENTRAL NERVOUS SYSTEM INFLAMMATION [None]
  - DEPRESSED LEVEL OF CONSCIOUSNESS [None]
  - DIARRHOEA [None]
  - FACIAL PARESIS [None]
  - LOWER RESPIRATORY TRACT INFECTION [None]
  - MUSCLE RIGIDITY [None]
  - MYOCLONUS [None]
  - NEUROLOGICAL DECOMPENSATION [None]
  - RENAL FAILURE [None]
  - RHEUMATOID ARTHRITIS [None]
  - SYNOVITIS [None]
